FAERS Safety Report 5572326-X (Version None)
Quarter: 2007Q4

REPORT INFORMATION
  Report Type: 
  Country: None (occurrence: None)
  Receive Date: 20071219
  Receipt Date: 20070504
  Transmission Date: 20080405
  Serious: Yes (Hospitalization)
  Sender: FDA-Public Use
  Company Number: 64920

PATIENT
  Age: 85 Year
  Sex: Male

DRUGS (6)
  1. ASPIRIN [Suspect]
     Indication: ANALGESIA
     Dosage: ORAL
     Route: 048
     Dates: start: 20061021, end: 20061024
  2. ASPIRIN [Suspect]
     Indication: PYREXIA
     Dosage: ORAL
     Route: 048
     Dates: start: 20061021, end: 20061024
  3. AMLODIPINE [Concomitant]
  4. FUROSEMIDE [Concomitant]
  5. OMEPRAZOLE [Concomitant]
  6. RAMIPRIL [Concomitant]

REACTIONS (1)
  - MELAENA [None]
